FAERS Safety Report 5737577-X (Version None)
Quarter: 2008Q2

REPORT INFORMATION
  Report Type: 
  Country: None (occurrence: None)
  Receive Date: 20080514
  Receipt Date: 20080201
  Transmission Date: 20081010
  Serious: No
  Sender: FDA-Public Use
  Company Number: US-ABBOTT-08P-163-0436361-00

PATIENT
  Sex: Female

DRUGS (2)
  1. ZEMPLAR [Suspect]
     Indication: DIALYSIS
     Route: 042
  2. ZEMPLAR [Suspect]

REACTIONS (3)
  - DYSGEUSIA [None]
  - TONGUE DISCOLOURATION [None]
  - WEIGHT DECREASED [None]
